FAERS Safety Report 4835656-2 (Version None)
Quarter: 2005Q4

REPORT INFORMATION
  Report Type: 
  Country: None (occurrence: None)
  Receive Date: 20051121
  Receipt Date: 20051110
  Transmission Date: 20060501
  Serious: Yes (Death, Other)
  Sender: FDA-Public Use
  Company Number: HQWYE512411NOV05

PATIENT
  Age: 54 Year
  Sex: Female

DRUGS (2)
  1. PREMARIN [Suspect]
     Indication: OESTROGEN REPLACEMENT THERAPY
     Dosage: ORAL
     Route: 048
     Dates: start: 19960101, end: 19980701
  2. CYCRIN [Suspect]

REACTIONS (1)
  - BREAST CANCER FEMALE [None]
